FAERS Safety Report 11842720 (Version 2)
Quarter: 2015Q4

REPORT INFORMATION
  Report Type: Spontaneous
  Country: SG (occurrence: SG)
  Receive Date: 20151216
  Receipt Date: 20151223
  Transmission Date: 20160305
  Serious: Yes (Other)
  Sender: FDA-Public Use
  Company Number: SG-SEATTLE GENETICS-2015SGN02016

PATIENT

DRUGS (2)
  1. ADCETRIS [Suspect]
     Active Substance: BRENTUXIMAB VEDOTIN
     Indication: PLASMABLASTIC LYMPHOMA
  2. ADCETRIS [Suspect]
     Active Substance: BRENTUXIMAB VEDOTIN
     Indication: LYMPHOPLASMACYTOID LYMPHOMA/IMMUNOCYTOMA
     Dosage: 1.8 MG/KG, Q21D
     Route: 065

REACTIONS (4)
  - No therapeutic response [None]
  - Malignant neoplasm progression [None]
  - Lymphoplasmacytoid lymphoma/immunocytoma [Recovered/Resolved]
  - Off label use [Unknown]
